FAERS Safety Report 10790083 (Version 1)
Quarter: 2015Q1

REPORT INFORMATION
  Report Type: Spontaneous
  Country: US (occurrence: US)
  Receive Date: 20150212
  Receipt Date: 20150212
  Transmission Date: 20150721
  Serious: No
  Sender: FDA-Public Use
  Company Number: US-GLAXOSMITHKLINE-A1088931A

PATIENT

DRUGS (2)
  1. ADVAIR DISKUS [Suspect]
     Active Substance: FLUTICASONE PROPIONATE\SALMETEROL XINAFOATE
     Indication: ASTHMA
     Dosage: 500/50 MCG
  2. VENTOLIN HFA [Suspect]
     Active Substance: ALBUTEROL SULFATE
     Indication: ASTHMA
     Dosage: 90 MCG

REACTIONS (8)
  - Asthma exercise induced [Unknown]
  - Expired product administered [Unknown]
  - Arthritis [Unknown]
  - Inhalation therapy [Unknown]
  - Multiple allergies [Unknown]
  - Asthma [Unknown]
  - Hypertension [Unknown]
  - Gout [Unknown]
